FAERS Safety Report 18285280 (Version 1)
Quarter: 2020Q3

REPORT INFORMATION
  Report Type: Spontaneous
  Country: US (occurrence: US)
  Receive Date: 20200918
  Receipt Date: 20200918
  Transmission Date: 20201103
  Serious: Yes (Hospitalization)
  Sender: FDA-Public Use
  Company Number: US-TEVA-2020-US-1830231

PATIENT
  Sex: Female

DRUGS (1)
  1. BACLOFEN. [Suspect]
     Active Substance: BACLOFEN
     Route: 065

REACTIONS (8)
  - Hip fracture [Unknown]
  - Musculoskeletal disorder [Unknown]
  - Fall [Unknown]
  - Asthenia [Unknown]
  - Head injury [Unknown]
  - Rib fracture [Unknown]
  - Gait inability [Unknown]
  - Hand fracture [Recovered/Resolved]
